FAERS Safety Report 6852664-0 (Version None)
Quarter: 2010Q3

REPORT INFORMATION
  Report Type: 
  Country: None (occurrence: None)
  Receive Date: 20100717
  Receipt Date: 20071120
  Transmission Date: 20110219
  Serious: No
  Sender: FDA-Public Use
  Company Number: US-PFIZER INC-2007099726

PATIENT
  Sex: Female
  Weight: 79.4 kg

DRUGS (7)
  1. CHANTIX [Suspect]
     Indication: SMOKING CESSATION THERAPY
     Route: 048
     Dates: start: 20071106
  2. PROVELLA-14 [Concomitant]
     Indication: HORMONE REPLACEMENT THERAPY
     Route: 048
     Dates: start: 20040101
  3. LIPITOR [Concomitant]
     Indication: BLOOD CHOLESTEROL INCREASED
     Route: 048
     Dates: start: 20040101
  4. ACETYLSALICYLIC ACID [Concomitant]
     Route: 048
     Dates: start: 20040101
  5. PROTONIX [Concomitant]
     Indication: GASTROOESOPHAGEAL REFLUX DISEASE
     Route: 048
     Dates: start: 20040101
  6. SYNTHROID [Concomitant]
     Route: 048
     Dates: start: 20040101
  7. VALSARTAN [Concomitant]
     Route: 048
     Dates: start: 20070601

REACTIONS (1)
  - NIGHTMARE [None]
